FAERS Safety Report 9152334 (Version 2)
Quarter: 2013Q1

REPORT INFORMATION
  Report Type: Spontaneous
  Country: TR (occurrence: TR)
  Receive Date: 20130308
  Receipt Date: 20130320
  Transmission Date: 20140127
  Serious: Yes (Hospitalization, Other)
  Sender: FDA-Public Use
  Company Number: PHHY2012TR049779

PATIENT
  Age: 84 Year
  Sex: Male

DRUGS (6)
  1. DONEPEZIL [Suspect]
     Indication: DEMENTIA ALZHEIMER^S TYPE
     Dosage: 5 MG, PER DAY
  2. DONEPEZIL [Suspect]
     Dosage: 5 MG, PER DAY
  3. DONEPEZIL [Suspect]
     Dosage: 10 MG, PER DAY
  4. METOPROLOL [Concomitant]
     Indication: HYPERTENSION
     Dosage: 5 MG, PER DAY
  5. RAMIPRIL [Concomitant]
     Dosage: 5 MG, PER DAY
  6. METFORMIN [Concomitant]
     Dosage: 1000 MG, PER DAY

REACTIONS (7)
  - Left ventricular hypertrophy [Recovered/Resolved]
  - Atrioventricular block complete [Recovered/Resolved]
  - Bradyarrhythmia [Recovered/Resolved]
  - Dyspnoea [Recovered/Resolved]
  - Ejection fraction decreased [Recovered/Resolved]
  - Syncope [Recovered/Resolved]
  - Blood potassium increased [Recovered/Resolved]
